FAERS Safety Report 9242980 (Version 1)
Quarter: 2013Q2

REPORT INFORMATION
  Report Type: Spontaneous
  Country: US (occurrence: US)
  Receive Date: 20130419
  Receipt Date: 20130419
  Transmission Date: 20140414
  Serious: Yes (Hospitalization)
  Sender: FDA-Public Use
  Company Number: US-ASTRAZENECA-2013SE23725

PATIENT
  Age: 80 Year
  Sex: Male

DRUGS (4)
  1. OMEPRAZOLE [Suspect]
     Indication: HELICOBACTER INFECTION
     Route: 048
  2. AMOXICILLIN [Interacting]
     Indication: HELICOBACTER INFECTION
  3. CLARITHROMYCIN [Interacting]
     Indication: HELICOBACTER INFECTION
  4. REPAGLINIDE [Interacting]
     Indication: TYPE 2 DIABETES MELLITUS

REACTIONS (2)
  - Drug interaction [Unknown]
  - Hypoglycaemia [Recovered/Resolved]
